FAERS Safety Report 9693744 (Version 1)
Quarter: 2013Q4

REPORT INFORMATION
  Report Type: Spontaneous
  Country: AU (occurrence: AU)
  Receive Date: 20131118
  Receipt Date: 20131118
  Transmission Date: 20140711
  Serious: Yes (Other)
  Sender: FDA-Public Use
  Company Number: AU-ABBVIE-13P-008-1157657-00

PATIENT
  Age: 38 Year
  Sex: Male

DRUGS (5)
  1. EPILIM [Suspect]
     Indication: PRODUCT USED FOR UNKNOWN INDICATION
  2. CLOZARIL [Suspect]
     Indication: PRODUCT USED FOR UNKNOWN INDICATION
  3. RANITIDINE [Concomitant]
     Indication: PRODUCT USED FOR UNKNOWN INDICATION
  4. SODIUM VALPROATE [Concomitant]
     Indication: PRODUCT USED FOR UNKNOWN INDICATION
  5. METFORMIN HYDROCHLORIDE [Concomitant]
     Indication: PRODUCT USED FOR UNKNOWN INDICATION

REACTIONS (14)
  - Cardiac failure [Unknown]
  - Hypoxia [Unknown]
  - Myocarditis [Unknown]
  - Blood creatine phosphokinase increased [Unknown]
  - C-reactive protein increased [Unknown]
  - Dyspnoea [Unknown]
  - Influenza like illness [Unknown]
  - Malaise [Unknown]
  - Myalgia [Unknown]
  - Pain [Unknown]
  - Pyrexia [Unknown]
  - Red blood cell sedimentation rate increased [Unknown]
  - Tachycardia [Unknown]
  - Troponin increased [Unknown]
